FAERS Safety Report 25832448 (Version 1)
Quarter: 2025Q3

REPORT INFORMATION
  Report Type: Spontaneous
  Country: GB (occurrence: GB)
  Receive Date: 20250922
  Receipt Date: 20250922
  Transmission Date: 20251021
  Serious: Yes (Hospitalization, Other)
  Sender: SANDOZ
  Company Number: GB-AUROBINDO-AUR-APL-2025-041944

PATIENT
  Age: 70 Year
  Sex: Female

DRUGS (12)
  1. ATORVASTATIN [Concomitant]
     Active Substance: ATORVASTATIN
     Indication: Product used for unknown indication
     Route: 048
  2. CLOPIDOGREL [Concomitant]
     Active Substance: CLOPIDOGREL BISULFATE
     Indication: Transient ischaemic attack
     Route: 048
     Dates: end: 202507
  3. CLOPIDOGREL [Concomitant]
     Active Substance: CLOPIDOGREL BISULFATE
     Route: 065
     Dates: start: 20250710
  4. EZETIMIBE [Concomitant]
     Active Substance: EZETIMIBE
     Indication: Product used for unknown indication
     Route: 048
  5. LANSOPRAZOLE [Concomitant]
     Active Substance: LANSOPRAZOLE
     Indication: Product used for unknown indication
     Route: 048
  6. METFORMIN [Concomitant]
     Active Substance: METFORMIN HYDROCHLORIDE
     Indication: Diabetes mellitus
     Dosage: 850 MILLIGRAM, 3 TIMES A DAY
     Route: 048
  7. AMLODIPINE [Interacting]
     Active Substance: AMLODIPINE BESYLATE
     Indication: Blood pressure measurement
     Route: 048
     Dates: start: 202508
  8. AMLODIPINE [Interacting]
     Active Substance: AMLODIPINE BESYLATE
     Indication: Diuretic therapy
     Route: 048
     Dates: end: 20250801
  9. AMILORIDE [Interacting]
     Active Substance: AMILORIDE
     Indication: Joint swelling
     Dosage: 5 MILLIGRAM, ONCE A DAY
     Route: 048
     Dates: end: 20250711
  10. FUROSEMIDE [Interacting]
     Active Substance: FUROSEMIDE
     Indication: Diuretic therapy
     Route: 048
     Dates: end: 20250711
  11. QUETIAPINE [Interacting]
     Active Substance: QUETIAPINE
     Indication: Muscle spasms
     Dosage: 300 MILLIGRAM, DAILY (300MG ONE TABLET DAILY) (FILM-COATED TABLETS 300MG)
     Route: 048
     Dates: start: 202506, end: 20250804
  12. QUININE [Interacting]
     Active Substance: QUININE
     Indication: Muscle spasms
     Route: 048

REACTIONS (10)
  - Altered state of consciousness [Recovered/Resolved]
  - Dysarthria [Recovered/Resolved]
  - Agitation [Recovered/Resolved]
  - Asthenia [Recovered/Resolved]
  - Hypotension [Recovered/Resolved]
  - Withdrawal syndrome [Recovering/Resolving]
  - Drug interaction [Recovered/Resolved]
  - Product dispensing error [Recovered/Resolved]
  - Product name confusion [Recovered/Resolved]
  - Wrong product administered [Recovered/Resolved]

NARRATIVE: CASE EVENT DATE: 20250601
